FAERS Safety Report 12520825 (Version 1)
Quarter: 2016Q2

REPORT INFORMATION
  Report Type: Spontaneous
  Country: US (occurrence: None)
  Receive Date: 20160630
  Receipt Date: 20160630
  Transmission Date: 20160815
  Serious: No
  Sender: FDA-Public Use
  Company Number: None

PATIENT
  Age: 74 Year
  Sex: Female
  Weight: 68.04 kg

DRUGS (10)
  1. VALACYCLOVIR [Concomitant]
     Active Substance: VALACYCLOVIR HYDROCHLORIDE
  2. BONEMINERALS [Concomitant]
  3. PRESERVISION [Concomitant]
     Active Substance: MINERALS\VITAMINS
  4. FISH OIL [Concomitant]
     Active Substance: FISH OIL
  5. CLOR-KON [Concomitant]
  6. CRANBERRY. [Concomitant]
     Active Substance: CRANBERRY
  7. CQ10 [Concomitant]
     Active Substance: UBIDECARENONE
  8. EPLERENONE 25MG TAB GREENSTONE [Suspect]
     Active Substance: EPLERENONE
     Indication: ADRENAL DISORDER
     Dosage: 25MG 1 TABLET TWICE DAILY MOUTH
     Route: 048
     Dates: start: 20160413, end: 20160418
  9. MULT VITS [Concomitant]
  10. VITAMIN D3 [Concomitant]
     Active Substance: CHOLECALCIFEROL

REACTIONS (18)
  - Headache [None]
  - Neck pain [None]
  - Urticaria [None]
  - Chest pain [None]
  - Hyperhidrosis [None]
  - Muscular weakness [None]
  - Pain in jaw [None]
  - Arthralgia [None]
  - Nausea [None]
  - Back pain [None]
  - Rash [None]
  - Chest discomfort [None]
  - Vaginal haemorrhage [None]
  - Dyspnoea [None]
  - Heart rate irregular [None]
  - Breast swelling [None]
  - Breast pain [None]
  - Constipation [None]

NARRATIVE: CASE EVENT DATE: 20160414
